FAERS Safety Report 9997570 (Version 1)
Quarter: 2014Q1

REPORT INFORMATION
  Report Type: Spontaneous
  Country: US (occurrence: None)
  Receive Date: 20140225
  Receipt Date: 20140225
  Transmission Date: 20141002
  Serious: Yes (Other)
  Sender: FDA-Public Use
  Company Number: 2013-376

PATIENT
  Age: 70 Year
  Sex: Male

DRUGS (3)
  1. PRIALT (ZICONOTIDE) INTRATHECAL INFUSION [Suspect]
     Indication: POST LAMINECTOMY SYNDROME
     Dates: start: 2000
  2. PRIALT (ZICONOTIDE) INTRATHECAL INFUSION [Suspect]
     Indication: PAIN
     Dates: start: 2000
  3. PRIALT (ZICONOTIDE) INTRATHECAL INFUSION [Suspect]
     Indication: POST LAMINECTOMY SYNDROME
     Dates: start: 2000

REACTIONS (1)
  - Hallucination [None]
